FAERS Safety Report 15820675 (Version 2)
Quarter: 2019Q1

REPORT INFORMATION
  Report Type: Spontaneous
  Country: US (occurrence: US)
  Receive Date: 20190114
  Receipt Date: 20190212
  Transmission Date: 20190417
  Serious: Yes (Hospitalization)
  Sender: FDA-Public Use
  Company Number: US-SA-2019SA008513

PATIENT
  Age: 53 Year
  Sex: Female

DRUGS (2)
  1. DUPIXENT [Suspect]
     Active Substance: DUPILUMAB
     Indication: DERMATITIS ATOPIC
     Dosage: 300 MG, QOW
     Route: 058
     Dates: start: 20180315
  2. ATIVAN [Suspect]
     Active Substance: LORAZEPAM

REACTIONS (5)
  - Hospitalisation [Recovered/Resolved]
  - Skin exfoliation [Unknown]
  - Product dose omission [Unknown]
  - Unevaluable event [Recovered/Resolved]
  - Pruritus [Unknown]
